FAERS Safety Report 7448126-2 (Version None)
Quarter: 2011Q2

REPORT INFORMATION
  Report Type: 
  Country: None (occurrence: None)
  Receive Date: 20110429
  Receipt Date: 20100405
  Transmission Date: 20111010
  Serious: No
  Sender: FDA-Public Use
  Company Number: US-ASTRAZENECA-2007UW27309

PATIENT
  Age: 64 Year
  Sex: Female
  Weight: 68 kg

DRUGS (6)
  1. ALTACE [Concomitant]
  2. METFORMIN [Concomitant]
  3. LIPITOR [Concomitant]
  4. LIPOFLAVONOID [Concomitant]
  5. NEXIUM [Suspect]
     Indication: GASTROOESOPHAGEAL REFLUX DISEASE
     Route: 048
     Dates: start: 20060101
  6. NEXIUM [Suspect]
     Indication: HIATUS HERNIA
     Route: 048
     Dates: start: 20060101

REACTIONS (5)
  - THROAT IRRITATION [None]
  - POLLAKIURIA [None]
  - MUSCULOSKELETAL STIFFNESS [None]
  - DRY MOUTH [None]
  - DRY THROAT [None]
